FAERS Safety Report 6180841-3 (Version None)
Quarter: 2009Q2

REPORT INFORMATION
  Report Type: 
  Country: None (occurrence: None)
  Receive Date: 20090506
  Receipt Date: 20090429
  Transmission Date: 20091009
  Serious: Yes (Other)
  Sender: FDA-Public Use
  Company Number: CA-WYE-G03107109

PATIENT
  Sex: Male
  Weight: 76 kg

DRUGS (10)
  1. TACROLIMUS [Suspect]
     Indication: PROPHYLAXIS AGAINST TRANSPLANT REJECTION
     Route: 048
     Dates: start: 20080130
  2. PREDNISONE [Suspect]
     Indication: IMMUNOSUPPRESSION
     Dosage: UNKNOWN
     Dates: start: 20080130
  3. LOSEC [Concomitant]
     Indication: GASTROOESOPHAGEAL REFLUX DISEASE
     Dosage: UNKNOWN
     Dates: start: 20090201
  4. LASIX [Concomitant]
  5. METOPROLOL SUCCINATE [Concomitant]
     Indication: HYPERTENSION
     Dosage: UNKNOWN
     Dates: start: 20090201
  6. LIPITOR [Concomitant]
     Indication: DYSLIPIDAEMIA
     Dosage: UNKNOWN
     Dates: start: 20090201
  7. ACETYLSALICYLIC ACID [Concomitant]
     Indication: PROPHYLAXIS
     Dosage: UNKNOWN
     Dates: start: 20090201
  8. CLONIDINE [Concomitant]
     Indication: HYPERTENSION
     Dosage: UNKNOWN
     Dates: start: 20090201
  9. CELLCEPT [Suspect]
     Indication: IMMUNOSUPPRESSION
     Dosage: UNKNOWN
     Dates: start: 20080130
  10. NORVASC [Concomitant]
     Indication: HYPERTENSION
     Dosage: UNKNOWN
     Dates: start: 20090201

REACTIONS (2)
  - CHRONIC ALLOGRAFT NEPHROPATHY [None]
  - KIDNEY TRANSPLANT REJECTION [None]
